FAERS Safety Report 8821466 (Version 3)
Quarter: 2015Q3

REPORT INFORMATION
  Report Type: Report from Study
  Country: US (occurrence: US)
  Receive Date: 20121002
  Receipt Date: 20150818
  Transmission Date: 20151125
  Serious: Yes (Other)
  Sender: FDA-Public Use
  Company Number: US-ROCHE-1137069

PATIENT
  Sex: Female
  Weight: 60.02 kg

DRUGS (13)
  1. RITUXAN [Suspect]
     Active Substance: RITUXIMAB
     Indication: CHRONIC LYMPHOCYTIC LEUKAEMIA
     Route: 042
     Dates: start: 19990806
  2. ESTRACE [Concomitant]
     Active Substance: ESTRADIOL
     Route: 065
  3. CLADRIBINE. [Concomitant]
     Active Substance: CLADRIBINE
     Dosage: 1 MG/ML
     Route: 042
  4. ASPIRIN. [Concomitant]
     Active Substance: ASPIRIN
  5. RITUXAN [Suspect]
     Active Substance: RITUXIMAB
     Indication: LYMPHOCYTIC LEUKAEMIA
     Route: 042
     Dates: start: 19990813
  6. MIACALCIN [Concomitant]
     Active Substance: CALCITONIN SALMON
     Route: 065
  7. TYLENOL [Concomitant]
     Active Substance: ACETAMINOPHEN
     Route: 065
  8. VERAPAMIL [Concomitant]
     Active Substance: VERAPAMIL HYDROCHLORIDE
     Route: 065
  9. PREVACID [Concomitant]
     Active Substance: LANSOPRAZOLE
     Route: 065
  10. CLADRIBINE. [Concomitant]
     Active Substance: CLADRIBINE
     Route: 042
  11. ZOLOFT [Concomitant]
     Active Substance: SERTRALINE HYDROCHLORIDE
     Route: 065
  12. DOCETAXEL. [Concomitant]
     Active Substance: DOCETAXEL
     Route: 065
  13. FLUDARABINE [Concomitant]
     Active Substance: FLUDARABINE PHOSPHATE

REACTIONS (8)
  - Oesophagitis [Unknown]
  - White blood cell count decreased [Unknown]
  - Tremor [Unknown]
  - Chest discomfort [Unknown]
  - Weight decreased [Unknown]
  - Back pain [Recovered/Resolved]
  - Muscle twitching [Unknown]
  - Disease progression [Unknown]
